FAERS Safety Report 25914485 (Version 1)
Quarter: 2025Q4

REPORT INFORMATION
  Report Type: Spontaneous
  Country: US (occurrence: US)
  Receive Date: 20251013
  Receipt Date: 20251013
  Transmission Date: 20260117
  Serious: Yes (Other)
  Sender: FERRING
  Company Number: US-FERRINGPH-2025FE05859

PATIENT

DRUGS (1)
  1. ADSTILADRIN [Suspect]
     Active Substance: NADOFARAGENE FIRADENOVEC-VNCG
     Indication: Product used for unknown indication
     Dosage: UNK
     Route: 065
     Dates: start: 20250924

REACTIONS (4)
  - Sepsis [Unknown]
  - Blood creatinine increased [Unknown]
  - Asthenia [Unknown]
  - Blood urine present [Unknown]

NARRATIVE: CASE EVENT DATE: 20250924
